FAERS Safety Report 5899491-9 (Version None)
Quarter: 2008Q3

REPORT INFORMATION
  Report Type: 
  Country: None (occurrence: None)
  Receive Date: 20080926
  Receipt Date: 20080916
  Transmission Date: 20090109
  Serious: Yes (Disabling)
  Sender: FDA-Public Use
  Company Number: US-WYE-H06046308

PATIENT
  Sex: Female

DRUGS (4)
  1. PRISTIQ [Suspect]
     Indication: DEPRESSION
     Route: 048
     Dates: start: 20080101
  2. PRISTIQ [Suspect]
     Route: 048
     Dates: start: 20080101
  3. PRISTIQ [Suspect]
     Route: 048
     Dates: start: 20080101
  4. TRYPTOPHAN, L- [Concomitant]
     Indication: MIGRAINE
     Dosage: UNKNOWN, PRN

REACTIONS (2)
  - CONDITION AGGRAVATED [None]
  - MIGRAINE [None]
